FAERS Safety Report 11813931 (Version 5)
Quarter: 2016Q1

REPORT INFORMATION
  Report Type: Spontaneous
  Country: DE (occurrence: DE)
  Receive Date: 20151209
  Receipt Date: 20160329
  Transmission Date: 20160525
  Serious: Yes (Hospitalization)
  Sender: FDA-Public Use
  Company Number: DE-UCBSA-2015039236

PATIENT
  Age: 7 Year
  Sex: Female
  Weight: 29 kg

DRUGS (2)
  1. VIMPAT [Suspect]
     Active Substance: LACOSAMIDE
     Dosage: STRENGTH: 100 MG, 6 TABLETS TOTAL.
     Route: 048
     Dates: start: 201503
  2. VIMPAT [Suspect]
     Active Substance: LACOSAMIDE
     Indication: EPILEPSY
     Dosage: 100 MG, 2X/DAY (BID), 100 MG-0-100MG
     Route: 048
     Dates: start: 201503, end: 20151203

REACTIONS (7)
  - Poisoning [Recovered/Resolved]
  - Hypothermia [Recovered/Resolved]
  - Off label use [Unknown]
  - Sopor [Unknown]
  - Overdose [Unknown]
  - Somnolence [Recovered/Resolved]
  - Vomiting [Recovered/Resolved]

NARRATIVE: CASE EVENT DATE: 201503
